FAERS Safety Report 9988096 (Version 1)
Quarter: 2014Q1

REPORT INFORMATION
  Report Type: Spontaneous
  Country: IT (occurrence: IT)
  Receive Date: 20140308
  Receipt Date: 20140308
  Transmission Date: 20141002
  Serious: Yes (Other)
  Sender: FDA-Public Use
  Company Number: IT-ROCHE-1359424

PATIENT
  Age: 68 Year
  Sex: Male

DRUGS (1)
  1. RITUXIMAB [Suspect]
     Indication: PEMPHIGUS
     Route: 065

REACTIONS (1)
  - Kaposi^s sarcoma [Recovering/Resolving]
